FAERS Safety Report 5821271-0 (Version None)
Quarter: 2008Q3

REPORT INFORMATION
  Report Type: 
  Country: None (occurrence: None)
  Receive Date: 20080722
  Receipt Date: 20080722
  Transmission Date: 20090109
  Serious: Yes (Hospitalization)
  Sender: FDA-Public Use
  Company Number: None

PATIENT
  Age: 52 Year
  Sex: Female

DRUGS (1)
  1. AZITHROMYCIN [Suspect]
     Indication: SINUSITIS
     Dosage: 2 ON THE FIRST DAY 1 FOR THE F DAILY
     Dates: start: 20080313, end: 20080314

REACTIONS (6)
  - ABASIA [None]
  - BACK PAIN [None]
  - JOINT STIFFNESS [None]
  - MOVEMENT DISORDER [None]
  - PAIN [None]
  - RHEUMATOID ARTHRITIS [None]
